FAERS Safety Report 9110739 (Version 1)
Quarter: 2013Q1

REPORT INFORMATION
  Report Type: Spontaneous
  Country: US (occurrence: US)
  Receive Date: 20130219
  Receipt Date: 20130219
  Transmission Date: 20140127
  Serious: No
  Sender: FDA-Public Use
  Company Number: US-BRISTOL-MYERS SQUIBB COMPANY-16907453

PATIENT
  Age: 66 Year
  Sex: Male

DRUGS (1)
  1. ORENCIA [Suspect]
     Indication: RHEUMATOID ARTHRITIS
     Dosage: LAST INFU:15AUG12
     Route: 042
     Dates: start: 20120718

REACTIONS (3)
  - Chest pain [Unknown]
  - Dizziness [Unknown]
  - Pain [Unknown]
